FAERS Safety Report 5670153-6 (Version None)
Quarter: 2008Q1

REPORT INFORMATION
  Report Type: 
  Country: None (occurrence: None)
  Receive Date: 20080312
  Receipt Date: 20080228
  Transmission Date: 20080703
  Serious: Yes (Hospitalization)
  Sender: FDA-Public Use
  Company Number: 2008BI003565

PATIENT
  Age: 45 Year
  Sex: Male
  Weight: 87 kg

DRUGS (1)
  1. TYSABRI [Suspect]
     Indication: MULTIPLE SCLEROSIS
     Dosage: 300 MG; QM; IV
     Route: 042
     Dates: start: 20061215, end: 20080115

REACTIONS (7)
  - BACTERIAL INFECTION [None]
  - BLOOD FIBRINOGEN INCREASED [None]
  - MEAN CELL HAEMOGLOBIN INCREASED [None]
  - PERITONSILLAR ABSCESS [None]
  - RED BLOOD CELL COUNT DECREASED [None]
  - SMEAR SITE UNSPECIFIED ABNORMAL [None]
  - TONSILLITIS [None]
